FAERS Safety Report 14506826 (Version 1)
Quarter: 2018Q1

REPORT INFORMATION
  Report Type: Spontaneous
  Country: BR (occurrence: BR)
  Receive Date: 20180208
  Receipt Date: 20180208
  Transmission Date: 20180509
  Serious: Yes (Hospitalization)
  Sender: FDA-Public Use
  Company Number: BR-PFIZER INC-2014117912

PATIENT
  Age: 60 Year
  Sex: Female
  Weight: 69 kg

DRUGS (7)
  1. SIMETHICONE (DIMETHICONE) [Concomitant]
     Active Substance: DIMETHICONE
     Indication: FLATULENCE
  2. LORAX [Suspect]
     Active Substance: LORAZEPAM
     Indication: NERVOUSNESS
     Dosage: 2 MG, DAILY
     Route: 048
  3. LORAX [Suspect]
     Active Substance: LORAZEPAM
     Indication: SEDATION
     Dosage: 03 TABLETS OF 2MG (6MG) DAILY
  4. CARBAMAZEPINE. [Concomitant]
     Active Substance: CARBAMAZEPINE
     Indication: DEPRESSION
     Dosage: 1 DF (1 TABLET) DAILY
     Dates: start: 2011
  5. EPAREMA /01513701/ [Concomitant]
     Indication: DYSPEPSIA
  6. LORAX [Suspect]
     Active Substance: LORAZEPAM
     Indication: ANXIETY
     Dosage: 4 MG, DAILY
     Route: 048
     Dates: start: 19930906
  7. CEFALIV [Concomitant]
     Indication: HEADACHE

REACTIONS (7)
  - Feeling of despair [Unknown]
  - Ankle fracture [Unknown]
  - Osteoporosis [Not Recovered/Not Resolved]
  - Thyroid disorder [Not Recovered/Not Resolved]
  - Dyspnoea [Unknown]
  - Blood cholesterol increased [Not Recovered/Not Resolved]
  - Intentional product misuse [Unknown]

NARRATIVE: CASE EVENT DATE: 201304
